FAERS Safety Report 5927418-X (Version None)
Quarter: 2008Q4

REPORT INFORMATION
  Report Type: 
  Country: None (occurrence: None)
  Receive Date: 20081021
  Receipt Date: 20081021
  Transmission Date: 20090506
  Serious: Yes (Other)
  Sender: FDA-Public Use
  Company Number: None

PATIENT
  Age: 65 Year
  Sex: Female
  Weight: 65.318 kg

DRUGS (1)
  1. OMEPRAZOLE [Suspect]
     Indication: ABDOMINAL PAIN UPPER
     Dosage: 1 CAPSULE DAILY
     Dates: start: 20080929

REACTIONS (4)
  - BACK PAIN [None]
  - BLADDER SPASM [None]
  - BLOOD URINE [None]
  - URINARY TRACT INFECTION [None]
